FAERS Safety Report 4647344-6 (Version None)
Quarter: 2005Q2

REPORT INFORMATION
  Report Type: 
  Country: None (occurrence: None)
  Receive Date: 20050426
  Receipt Date: 20050412
  Transmission Date: 20051028
  Serious: Yes (Hospitalization, Other)
  Sender: FDA-Public Use
  Company Number: 2005BI007678

PATIENT
  Sex: Female

DRUGS (1)
  1. AVONEX [Suspect]
     Indication: MULTIPLE SCLEROSIS
     Dosage: IM
     Route: 030

REACTIONS (7)
  - AMNESIA [None]
  - BACK PAIN [None]
  - BONE DISORDER [None]
  - BRONCHITIS [None]
  - FATIGUE [None]
  - HAEMOGLOBIN DECREASED [None]
  - PNEUMONIA [None]
